FAERS Safety Report 5044930-9 (Version None)
Quarter: 2006Q2

REPORT INFORMATION
  Report Type: 
  Country: None (occurrence: None)
  Receive Date: 20060601
  Receipt Date: 20060321
  Transmission Date: 20061013
  Serious: No
  Sender: FDA-Public Use
  Company Number: US200603005539

PATIENT
  Age: 24 Year
  Sex: Male

DRUGS (6)
  1. CYMBALTA [Suspect]
     Indication: DIABETIC NEUROPATHY
     Dosage: SEE IMAGE
     Dates: start: 20060301
  2. HUMALOG [Concomitant]
  3. LANTUS [Concomitant]
  4. SIMVASTAIN (SIMVASTATIN) [Concomitant]
  5. ZYRTEK (CETIRIZINE HYDROCHLORIDE) [Concomitant]
  6. PREVACID [Concomitant]

REACTIONS (4)
  - ABNORMAL BEHAVIOUR [None]
  - INSOMNIA [None]
  - LOGORRHOEA [None]
  - SEXUAL DYSFUNCTION [None]
